FAERS Safety Report 7864676-9 (Version None)
Quarter: 2011Q4

REPORT INFORMATION
  Report Type: 
  Country: None (occurrence: None)
  Receive Date: 20111028
  Receipt Date: 20111024
  Transmission Date: 20120403
  Serious: Yes (Hospitalization, Other)
  Sender: FDA-Public Use
  Company Number: IL-PFIZER INC-2011259725

PATIENT
  Age: 58 Year
  Sex: Male

DRUGS (10)
  1. CLINDAMYCIN HCL [Suspect]
     Dosage: UNK
     Dates: start: 20110812, end: 20110830
  2. INSULIN DETEMIR [Suspect]
     Indication: TYPE 2 DIABETES MELLITUS
     Dosage: 60 IU, UNK
  3. CLINDAMYCIN HCL [Suspect]
     Dosage: UNK
     Dates: start: 20110917, end: 20111005
  4. CLINDAMYCIN HCL [Suspect]
     Dosage: 1800 MG, UNK
     Dates: start: 20110417, end: 20110418
  5. NOVORAPID [Suspect]
     Indication: TYPE 2 DIABETES MELLITUS
     Dosage: 60 IU, UNK
  6. CLINDAMYCIN HCL [Suspect]
     Dosage: 900 MG, UNK
     Dates: start: 20110418, end: 20110504
  7. CIPROFLAXACIN [Suspect]
     Dosage: UNK
     Dates: start: 20110815, end: 20110830
  8. BLINDED THERAPY [Suspect]
     Indication: TYPE 2 DIABETES MELLITUS
     Dosage: UNK
     Dates: start: 20101212
  9. CIPROFLAXACIN [Suspect]
     Dosage: 1000 MG, UNK
     Dates: start: 20110417
  10. ASPIRIN [Concomitant]

REACTIONS (2)
  - DIABETIC FOOT [None]
  - HEPATIC ENZYME INCREASED [None]
